FAERS Safety Report 15516794 (Version 1)
Quarter: 2018Q4

REPORT INFORMATION
  Report Type: Spontaneous
  Country: US (occurrence: US)
  Receive Date: 20181017
  Receipt Date: 20181017
  Transmission Date: 20190205
  Serious: No
  Sender: FDA-Public Use
  Company Number: US-PHARMING-PHAUS2018000669

PATIENT

DRUGS (16)
  1. BACLOFEN. [Concomitant]
     Active Substance: BACLOFEN
  2. SODIUM CHLORIDE. [Concomitant]
     Active Substance: SODIUM CHLORIDE
  3. EPINEPHRINE. [Concomitant]
     Active Substance: EPINEPHRINE
  4. FAMOTIDINE. [Concomitant]
     Active Substance: FAMOTIDINE
  5. PROTONIX [Concomitant]
     Active Substance: PANTOPRAZOLE SODIUM
  6. FIRAZYR [Concomitant]
     Active Substance: ICATIBANT ACETATE
     Dosage: UNK
  7. ZOFRAN [Concomitant]
     Active Substance: ONDANSETRON HYDROCHLORIDE
     Dosage: UNK
  8. HEPARIN [Concomitant]
     Active Substance: HEPARIN SODIUM
  9. APRISO [Concomitant]
     Active Substance: MESALAMINE
  10. DICYCLOMINE [Concomitant]
     Active Substance: DICYCLOMINE HYDROCHLORIDE
  11. HYDROCHLOROTHIAZIDE. [Concomitant]
     Active Substance: HYDROCHLOROTHIAZIDE
     Dosage: UNK
  12. RUCONEST [Suspect]
     Active Substance: HUMAN C1-ESTERASE INHIBITOR
     Indication: HEREDITARY ANGIOEDEMA
     Dosage: 3000 IU, AS NEEDED
     Route: 042
     Dates: start: 20170922
  13. STERILE WATER [Concomitant]
     Active Substance: WATER
  14. NEURONTIN [Concomitant]
     Active Substance: GABAPENTIN
  15. LAMOTRIGINE. [Concomitant]
     Active Substance: LAMOTRIGINE
  16. OXYCODONE [Concomitant]
     Active Substance: OXYCODONE

REACTIONS (2)
  - Constipation [Unknown]
  - Tachycardia [Unknown]
